FAERS Safety Report 10110124 (Version 1)
Quarter: 2014Q2

REPORT INFORMATION
  Report Type: Spontaneous
  Country: SG (occurrence: SG)
  Receive Date: 20140425
  Receipt Date: 20140425
  Transmission Date: 20141212
  Serious: Yes (Other)
  Sender: FDA-Public Use
  Company Number: SG-AMGEN INC.-SGPSP2014029939

PATIENT
  Age: 45 Year
  Sex: Female

DRUGS (4)
  1. NEUPOGEN [Suspect]
     Indication: PROPHYLAXIS
     Dosage: UNK UNK, ON DAY 4, 5 AND 6 (1 IN 1 D)
     Route: 042
     Dates: start: 20140330, end: 20140401
  2. TAXOTERE [Concomitant]
     Indication: BREAST CANCER
     Dosage: 120 MG, UNK
     Route: 042
     Dates: start: 20140327
  3. CARBOPLATIN [Concomitant]
     Indication: BREAST CANCER
     Dosage: 800 MG, UNK
     Route: 042
     Dates: start: 20140327
  4. HERCEPTIN [Concomitant]
     Indication: BREAST CANCER
     Dosage: 460 MG, UNK
     Route: 042
     Dates: start: 20140327

REACTIONS (2)
  - Malaise [Recovered/Resolved]
  - Bone pain [Recovered/Resolved]
